FAERS Safety Report 6679700-9 (Version None)
Quarter: 2010Q2

REPORT INFORMATION
  Report Type: 
  Country: None (occurrence: None)
  Receive Date: 20100409
  Receipt Date: 20100326
  Transmission Date: 20101027
  Serious: Yes (Other)
  Sender: FDA-Public Use
  Company Number: 233135J10USA

PATIENT
  Age: 46 Year
  Sex: Female

DRUGS (2)
  1. REBIF [Suspect]
     Indication: MULTIPLE SCLEROSIS
     Dosage: 8.8 MG, 3 IN 1 WK, SUBCUTANEOUS; SUBCUTANEOUS
     Route: 058
     Dates: start: 20100315
  2. TYLENOL [Concomitant]

REACTIONS (1)
  - OPTIC NEURITIS [None]
